FAERS Safety Report 12345378 (Version 1)
Quarter: 2016Q2

REPORT INFORMATION
  Report Type: Spontaneous
  Country: US (occurrence: US)
  Receive Date: 20160508
  Receipt Date: 20160508
  Transmission Date: 20160815
  Serious: No
  Sender: FDA-Public Use
  Company Number: US-HORIZON-PEN-0207-2016

PATIENT
  Age: 70 Year
  Sex: Female

DRUGS (3)
  1. PENNSAID [Suspect]
     Active Substance: DICLOFENAC SODIUM
     Indication: ARTHRALGIA
     Dosage: TWICE DAILY
     Dates: start: 2016
  2. HUMIRA [Concomitant]
     Active Substance: ADALIMUMAB
  3. CELEBREX [Concomitant]
     Active Substance: CELECOXIB

REACTIONS (2)
  - Off label use [Unknown]
  - Therapy cessation [Unknown]

NARRATIVE: CASE EVENT DATE: 2016
